FAERS Safety Report 25077921 (Version 1)
Quarter: 2025Q1

REPORT INFORMATION
  Report Type: Report from Study
  Country: US (occurrence: US)
  Receive Date: 20250314
  Receipt Date: 20250314
  Transmission Date: 20250408
  Serious: Yes (Other)
  Sender: TAIHO ONCOLOGY INC
  Company Number: US-TAIHOP-2025-002710

PATIENT
  Age: 79 Year
  Sex: Male

DRUGS (1)
  1. INQOVI [Suspect]
     Active Substance: CEDAZURIDINE\DECITABINE
     Indication: Essential thrombocythaemia
     Dosage: CYCLE UNKNOWN?135MG (35MG DECITABINE AND 100MG CEDAZURIDINE) ON DAYS 1-5 OF EACH 28-DAY CYCLE
     Route: 048
     Dates: start: 202502

REACTIONS (2)
  - Transfusion [Unknown]
  - Product use in unapproved indication [Unknown]

NARRATIVE: CASE EVENT DATE: 20250304
